FAERS Safety Report 9741918 (Version 1)
Quarter: 2013Q4

REPORT INFORMATION
  Report Type: Report from Study
  Country: US (occurrence: US)
  Receive Date: 20131210
  Receipt Date: 20131210
  Transmission Date: 20140711
  Serious: Yes (Death)
  Sender: FDA-Public Use
  Company Number: US-ROCHE-1305932

PATIENT
  Sex: Female

DRUGS (3)
  1. AVASTIN [Suspect]
     Indication: PANCREATIC CARCINOMA METASTATIC
     Dosage: WITH SODIUM CHLORIDE 0.9 % INJECTION100ML. THE PATIENT RECEIVED THE DOSE ON 17/OCT/2011.
     Route: 042
  2. AVASTIN [Suspect]
     Dosage: WITH SODIUM CHLORIDE 0.9 % INJECTION100ML. THE PATIENT RECEIVED THE DOSE ON 14/NOV/2011.
     Route: 042
  3. GEMCITABINE [Concomitant]
     Dosage: WITH SODIUM CHLORIDE 0.9 % INJECTION 250 ML. THE PATIENT RECEIVED THE DOSE ON 17/OCT/2011 AND 14/NOV
     Route: 042

REACTIONS (1)
  - Death [Fatal]
